FAERS Safety Report 8111199-8 (Version None)
Quarter: 2012Q1

REPORT INFORMATION
  Report Type: 
  Country: None (occurrence: None)
  Receive Date: 20120203
  Receipt Date: 20110616
  Transmission Date: 20120608
  Serious: Yes (Other)
  Sender: FDA-Public Use
  Company Number: US-GLAXOSMITHKLINE-A0931744A

PATIENT
  Age: 49 Year
  Sex: Female

DRUGS (6)
  1. BENICAR [Concomitant]
  2. ALPRAZOLAM [Concomitant]
  3. ALDOMET [Concomitant]
  4. LASIX [Concomitant]
  5. LAMICTAL [Suspect]
     Indication: FATIGUE
     Dosage: 75MG PER DAY
     Route: 048
     Dates: start: 20080101
  6. KLONOPIN [Concomitant]

REACTIONS (3)
  - OFF LABEL USE [None]
  - SUICIDAL IDEATION [None]
  - DRUG INEFFECTIVE [None]
